FAERS Safety Report 21244241 (Version 1)
Quarter: 2022Q3

REPORT INFORMATION
  Report Type: Spontaneous
  Country: US (occurrence: None)
  Receive Date: 20220822
  Receipt Date: 20220822
  Transmission Date: 20221027
  Serious: Yes (Hospitalization)
  Sender: FDA-Public Use
  Company Number: None

PATIENT
  Age: 67 Year
  Sex: Female

DRUGS (1)
  1. LENALIDOMIDE [Suspect]
     Active Substance: LENALIDOMIDE
     Dosage: FREQUENCY : DAILY; (10MG FOR 21 DAYS ON 7)?
     Route: 048
     Dates: start: 202001

REACTIONS (5)
  - Bronchitis [None]
  - Pneumonia [None]
  - Acute kidney injury [None]
  - Cough [None]
  - Peripheral swelling [None]

NARRATIVE: CASE EVENT DATE: 20220727
